FAERS Safety Report 13838915 (Version 1)
Quarter: 2017Q3

REPORT INFORMATION
  Report Type: Spontaneous
  Country: US (occurrence: US)
  Receive Date: 20170807
  Receipt Date: 20170807
  Transmission Date: 20171127
  Serious: No
  Sender: FDA-Public Use
  Company Number: US-PFIZER INC-2017339058

PATIENT
  Sex: Female

DRUGS (2)
  1. XELJANZ XR [Suspect]
     Active Substance: TOFACITINIB CITRATE
     Indication: RHEUMATOID ARTHRITIS
     Dosage: 11 MG, DAILY
  2. SULFASALAZINE. [Suspect]
     Active Substance: SULFASALAZINE
     Indication: RHEUMATOID ARTHRITIS
     Dosage: UNK

REACTIONS (11)
  - Ligament sprain [Unknown]
  - Joint crepitation [Unknown]
  - Drug ineffective [Unknown]
  - Synovitis [Unknown]
  - Product use in unapproved indication [Unknown]
  - Joint range of motion decreased [Not Recovered/Not Resolved]
  - Fall [Unknown]
  - Macrocytosis [Unknown]
  - Muscle atrophy [Unknown]
  - Synovial cyst [Unknown]
  - Pain [Not Recovered/Not Resolved]
